FAERS Safety Report 20611971 (Version 1)
Quarter: 2022Q1

REPORT INFORMATION
  Report Type: Spontaneous
  Country: ES (occurrence: ES)
  Receive Date: 20220318
  Receipt Date: 20220318
  Transmission Date: 20220423
  Serious: Yes (Death, Hospitalization)
  Sender: FDA-Public Use
  Company Number: None

PATIENT
  Age: 100 Year
  Sex: Female

DRUGS (3)
  1. FENTANYL [Suspect]
     Active Substance: FENTANYL
     Dosage: FENTANYL MATRIX RATIOPHARM 12 MICROGRAMS/HOUR TRANSDERMAL PATCHES EFG, 5 PATCHES
     Dates: start: 20211110
  2. FUROSEMIDE [Concomitant]
     Active Substance: FUROSEMIDE
     Dosage: FUROSEMIDE (1615A)
  3. DIGOXIN [Concomitant]
     Active Substance: DIGOXIN
     Dosage: DIGOXIN (770A)

REACTIONS (1)
  - Loss of consciousness [Fatal]

NARRATIVE: CASE EVENT DATE: 20211111
